FAERS Safety Report 5109805-5 (Version None)
Quarter: 2006Q3

REPORT INFORMATION
  Report Type: 
  Country: None (occurrence: None)
  Receive Date: 20060918
  Receipt Date: 20060918
  Transmission Date: 20061208
  Serious: Yes (Other)
  Sender: FDA-Public Use
  Company Number: None

PATIENT
  Sex: Male
  Weight: 96.1626 kg

DRUGS (2)
  1. FLUVASTATIN [Suspect]
     Indication: LOW DENSITY LIPOPROTEIN INCREASED
     Dosage: 80 MG  DAILY  PO
     Route: 048
     Dates: start: 20060115, end: 20060215
  2. ATORVASTATIN CALCIUM [Suspect]
     Indication: PAIN
     Dosage: 40 MG   DAILY  PO
     Route: 048
     Dates: start: 20060222, end: 20060310

REACTIONS (7)
  - ARTHRALGIA [None]
  - BACK PAIN [None]
  - CONDITION AGGRAVATED [None]
  - MOBILITY DECREASED [None]
  - MUSCLE INJURY [None]
  - MYALGIA [None]
  - SOCIAL PROBLEM [None]
